FAERS Safety Report 21441869 (Version 3)
Quarter: 2022Q4

REPORT INFORMATION
  Report Type: Report from Study
  Country: FR (occurrence: FR)
  Receive Date: 20221011
  Receipt Date: 20221104
  Transmission Date: 20230112
  Serious: Yes (Other)
  Sender: FDA-Public Use
  Company Number: FR-ARCUS BIOSCIENCES-2022-ARC-000287

PATIENT
  Age: 62 Year
  Sex: Male
  Weight: 70 kg

DRUGS (113)
  1. ZIMBERELIMAB [Suspect]
     Active Substance: ZIMBERELIMAB
     Indication: Colorectal cancer
     Dosage: 480 MILLIGRAM, SINGLE DOSE
     Route: 041
     Dates: start: 20220214, end: 20220214
  2. ZIMBERELIMAB [Suspect]
     Active Substance: ZIMBERELIMAB
     Dosage: 480 MILLIGRAM, SINGLE DOSE
     Route: 041
     Dates: start: 20220314, end: 20220314
  3. ZIMBERELIMAB [Suspect]
     Active Substance: ZIMBERELIMAB
     Dosage: 480 MILLIGRAM, SINGLE DOSE
     Route: 041
     Dates: start: 20220411, end: 20220411
  4. ZIMBERELIMAB [Suspect]
     Active Substance: ZIMBERELIMAB
     Dosage: 480 MILLIGRAM, SINGLE DOSE
     Route: 041
     Dates: start: 20220509, end: 20220509
  5. ZIMBERELIMAB [Suspect]
     Active Substance: ZIMBERELIMAB
     Dosage: 480 MILLIGRAM, SINGLE DOSE
     Route: 041
     Dates: start: 20220608, end: 20220608
  6. ZIMBERELIMAB [Suspect]
     Active Substance: ZIMBERELIMAB
     Dosage: 480 MILLIGRAM, SINGLE DOSE
     Route: 041
     Dates: start: 20220704, end: 20220704
  7. ZIMBERELIMAB [Suspect]
     Active Substance: ZIMBERELIMAB
     Dosage: 480 MILLIGRAM, SINGLE DOSE
     Route: 041
     Dates: start: 20220802, end: 20220802
  8. ZIMBERELIMAB [Suspect]
     Active Substance: ZIMBERELIMAB
     Dosage: 480 MILLIGRAM, SINGLE DOSE
     Route: 041
     Dates: start: 20220906, end: 20220906
  9. ZIMBERELIMAB [Suspect]
     Active Substance: ZIMBERELIMAB
     Dosage: 480 MILLIGRAM, SINGLE DOSE
     Route: 041
     Dates: start: 20221003, end: 20221003
  10. ETRUMADENANT [Suspect]
     Active Substance: ETRUMADENANT
     Indication: Colorectal cancer
     Dosage: 150 MILLIGRAM, SINGLE DOSE
     Dates: start: 20220216, end: 20220313
  11. ETRUMADENANT [Suspect]
     Active Substance: ETRUMADENANT
     Dosage: 150 MILLIGRAM, SINGLE DOSE
     Dates: start: 20220316, end: 20220410
  12. ETRUMADENANT [Suspect]
     Active Substance: ETRUMADENANT
     Dosage: 150 MILLIGRAM, SINGLE DOSE
     Dates: start: 20220413, end: 20220508
  13. ETRUMADENANT [Suspect]
     Active Substance: ETRUMADENANT
     Dosage: 150 MILLIGRAM, SINGLE DOSE
     Dates: start: 20220420, end: 20220508
  14. ETRUMADENANT [Suspect]
     Active Substance: ETRUMADENANT
     Dosage: 150 MILLIGRAM, SINGLE DOSE
     Dates: start: 20220508, end: 20220508
  15. ETRUMADENANT [Suspect]
     Active Substance: ETRUMADENANT
     Dosage: 150 MILLIGRAM, SINGLE DOSE
     Dates: start: 20220511, end: 20220605
  16. ETRUMADENANT [Suspect]
     Active Substance: ETRUMADENANT
     Dosage: 150 MILLIGRAM, SINGLE DOSE
     Dates: start: 20220512, end: 20220605
  17. ETRUMADENANT [Suspect]
     Active Substance: ETRUMADENANT
     Dosage: 150 MILLIGRAM, SINGLE DOSE
     Dates: start: 20220518, end: 20220605
  18. ETRUMADENANT [Suspect]
     Active Substance: ETRUMADENANT
     Dosage: 150 MILLIGRAM, SINGLE DOSE
     Dates: start: 20220605, end: 20220605
  19. ETRUMADENANT [Suspect]
     Active Substance: ETRUMADENANT
     Dosage: 150 MILLIGRAM, SINGLE DOSE
     Dates: start: 20220607, end: 20220620
  20. ETRUMADENANT [Suspect]
     Active Substance: ETRUMADENANT
     Dosage: 150 MILLIGRAM, SINGLE DOSE
     Dates: start: 20220608, end: 20220620
  21. ETRUMADENANT [Suspect]
     Active Substance: ETRUMADENANT
     Dosage: 150 MILLIGRAM, SINGLE DOSE
     Dates: start: 20220609, end: 20220620
  22. ETRUMADENANT [Suspect]
     Active Substance: ETRUMADENANT
     Dosage: 150 MILLIGRAM, SINGLE DOSE
     Dates: start: 20220614, end: 20220620
  23. ETRUMADENANT [Suspect]
     Active Substance: ETRUMADENANT
     Dosage: 150 MILLIGRAM, SINGLE DOSE
     Dates: start: 20220620, end: 20220620
  24. ETRUMADENANT [Suspect]
     Active Substance: ETRUMADENANT
     Dosage: 150 MILLIGRAM, SINGLE DOSE
     Dates: start: 20220704, end: 20220704
  25. ETRUMADENANT [Suspect]
     Active Substance: ETRUMADENANT
     Dosage: 150 MILLIGRAM, SINGLE DOSE
     Dates: start: 20220804, end: 20220829
  26. ETRUMADENANT [Suspect]
     Active Substance: ETRUMADENANT
     Dosage: 150 MILLIGRAM, SINGLE DOSE
     Dates: start: 20220805, end: 20220829
  27. ETRUMADENANT [Suspect]
     Active Substance: ETRUMADENANT
     Dosage: 150 MILLIGRAM, SINGLE DOSE
     Dates: start: 20220810, end: 20220829
  28. ETRUMADENANT [Suspect]
     Active Substance: ETRUMADENANT
     Dosage: 150 MILLIGRAM, SINGLE DOSE
     Dates: start: 20220811, end: 20220829
  29. ETRUMADENANT [Suspect]
     Active Substance: ETRUMADENANT
     Dosage: 150 MILLIGRAM, SINGLE DOSE
     Dates: start: 20220829, end: 20220829
  30. ETRUMADENANT [Suspect]
     Active Substance: ETRUMADENANT
     Dosage: 150 MILLIGRAM, SINGLE DOSE
     Dates: start: 20220908, end: 20221002
  31. ETRUMADENANT [Suspect]
     Active Substance: ETRUMADENANT
     Dosage: 150 MILLIGRAM, SINGLE DOSE
     Dates: start: 20220910, end: 20221002
  32. ETRUMADENANT [Suspect]
     Active Substance: ETRUMADENANT
     Dosage: 150 MILLIGRAM, SINGLE DOSE
     Dates: start: 20220914, end: 20221002
  33. ETRUMADENANT [Suspect]
     Active Substance: ETRUMADENANT
     Dosage: 150 MILLIGRAM, SINGLE DOSE
     Dates: start: 20220915, end: 20221002
  34. ETRUMADENANT [Suspect]
     Active Substance: ETRUMADENANT
     Dosage: 150 MILLIGRAM, SINGLE DOSE
     Dates: start: 20221002, end: 20221002
  35. QUEMLICLUSTAT [Suspect]
     Active Substance: QUEMLICLUSTAT
     Indication: Colorectal cancer
     Dosage: DRUG NOT ADMINISTERED
     Route: 065
  36. LEUCOVORIN [Suspect]
     Active Substance: LEUCOVORIN
     Indication: Colorectal cancer
     Dosage: 400 MILLIGRAM, SINGLE DOSE
     Route: 041
     Dates: start: 20220214, end: 20220214
  37. LEUCOVORIN [Suspect]
     Active Substance: LEUCOVORIN
     Dosage: 400 MILLIGRAM, SINGLE DOSE
     Route: 041
     Dates: start: 20220228, end: 20220228
  38. LEUCOVORIN [Suspect]
     Active Substance: LEUCOVORIN
     Dosage: 400 MILLIGRAM, SINGLE DOSE
     Route: 041
     Dates: start: 20220314, end: 20220314
  39. LEUCOVORIN [Suspect]
     Active Substance: LEUCOVORIN
     Dosage: 400 MILLIGRAM, SINGLE DOSE
     Route: 041
     Dates: start: 20220328, end: 20220328
  40. LEUCOVORIN [Suspect]
     Active Substance: LEUCOVORIN
     Dosage: 400 MILLIGRAM, SINGLE DOSE
     Route: 041
     Dates: start: 20220411, end: 20220411
  41. LEUCOVORIN [Suspect]
     Active Substance: LEUCOVORIN
     Dosage: 400 MILLIGRAM, SINGLE DOSE
     Route: 041
     Dates: start: 20220425, end: 20220425
  42. LEUCOVORIN [Suspect]
     Active Substance: LEUCOVORIN
     Dosage: 400 MILLIGRAM, SINGLE DOSE
     Route: 041
     Dates: start: 20220509, end: 20220509
  43. LEUCOVORIN [Suspect]
     Active Substance: LEUCOVORIN
     Dosage: 400 MILLIGRAM, SINGLE DOSE
     Route: 041
     Dates: start: 20220523, end: 20220523
  44. LEUCOVORIN [Suspect]
     Active Substance: LEUCOVORIN
     Dosage: 400 MILLIGRAM, SINGLE DOSE
     Route: 041
     Dates: start: 20220608, end: 20220608
  45. LEUCOVORIN [Suspect]
     Active Substance: LEUCOVORIN
     Dosage: 400 MILLIGRAM, SINGLE DOSE
     Route: 041
     Dates: start: 20220704, end: 20220704
  46. LEUCOVORIN [Suspect]
     Active Substance: LEUCOVORIN
     Dosage: 400 MILLIGRAM, SINGLE DOSE
     Route: 041
     Dates: start: 20220719, end: 20220719
  47. LEUCOVORIN [Suspect]
     Active Substance: LEUCOVORIN
     Dosage: 400 MILLIGRAM, SINGLE DOSE
     Route: 041
     Dates: start: 20220802, end: 20220802
  48. LEUCOVORIN [Suspect]
     Active Substance: LEUCOVORIN
     Dosage: 400 MILLIGRAM, SINGLE DOSE
     Route: 041
     Dates: start: 20220816, end: 20220816
  49. LEUCOVORIN [Suspect]
     Active Substance: LEUCOVORIN
     Dosage: 400 MILLIGRAM, SINGLE DOSE
     Route: 041
     Dates: start: 20220906, end: 20220906
  50. LEUCOVORIN [Suspect]
     Active Substance: LEUCOVORIN
     Dosage: 400 MILLIGRAM, SINGLE DOSE
     Route: 041
     Dates: start: 20220919, end: 20220919
  51. LEUCOVORIN [Suspect]
     Active Substance: LEUCOVORIN
     Dosage: 400 MILLIGRAM, SINGLE DOSE
     Route: 041
     Dates: start: 20221003, end: 20221003
  52. LEUCOVORIN [Suspect]
     Active Substance: LEUCOVORIN
     Dosage: 400 MILLIGRAM, SINGLE DOSE
     Route: 041
     Dates: start: 20221017, end: 20221017
  53. OXALIPLATIN [Suspect]
     Active Substance: OXALIPLATIN
     Indication: Colorectal cancer
     Dosage: 155 MILLIGRAM, SINGLE DOSE
     Route: 041
     Dates: start: 20220214, end: 20220214
  54. OXALIPLATIN [Suspect]
     Active Substance: OXALIPLATIN
     Dosage: 155 MILLIGRAM, SINGLE DOSE
     Route: 041
     Dates: start: 20220228, end: 20220228
  55. OXALIPLATIN [Suspect]
     Active Substance: OXALIPLATIN
     Dosage: 155 MILLIGRAM, SINGLE DOSE
     Route: 041
     Dates: start: 20220314, end: 20220314
  56. OXALIPLATIN [Suspect]
     Active Substance: OXALIPLATIN
     Dosage: 155 MILLIGRAM, SINGLE DOSE
     Route: 041
     Dates: start: 20220328, end: 20220328
  57. OXALIPLATIN [Suspect]
     Active Substance: OXALIPLATIN
     Dosage: 155 MILLIGRAM, SINGLE DOSE
     Route: 041
     Dates: start: 20220411, end: 20220411
  58. OXALIPLATIN [Suspect]
     Active Substance: OXALIPLATIN
     Dosage: 155 MILLIGRAM, SINGLE DOSE
     Route: 041
     Dates: start: 20220425, end: 20220425
  59. OXALIPLATIN [Suspect]
     Active Substance: OXALIPLATIN
     Dosage: 155 MILLIGRAM, SINGLE DOSE
     Route: 041
     Dates: start: 20220509, end: 20220509
  60. OXALIPLATIN [Suspect]
     Active Substance: OXALIPLATIN
     Dosage: 155 MILLIGRAM, SINGLE DOSE
     Route: 041
     Dates: start: 20220523, end: 20220523
  61. OXALIPLATIN [Suspect]
     Active Substance: OXALIPLATIN
     Dosage: 155 MILLIGRAM, SINGLE DOSE
     Route: 041
     Dates: start: 20220608, end: 20220608
  62. FLUOROURACIL [Suspect]
     Active Substance: FLUOROURACIL
     Indication: Colorectal cancer
     Dosage: 750 MILLIGRAM, SINGLE DOSE
     Route: 040
     Dates: start: 20220214, end: 20220214
  63. FLUOROURACIL [Suspect]
     Active Substance: FLUOROURACIL
     Dosage: 4450 MILLIGRAM, SINGLE DOSE
     Route: 041
     Dates: start: 20220214, end: 20220214
  64. FLUOROURACIL [Suspect]
     Active Substance: FLUOROURACIL
     Dosage: 750 MILLIGRAM, SINGLE DOSE
     Route: 040
     Dates: start: 20220228, end: 20220228
  65. FLUOROURACIL [Suspect]
     Active Substance: FLUOROURACIL
     Dosage: 4450 MILLIGRAM, SINGLE DOSE
     Route: 041
     Dates: start: 20220228, end: 20220228
  66. FLUOROURACIL [Suspect]
     Active Substance: FLUOROURACIL
     Dosage: 750 MILLIGRAM, SINGLE DOSE
     Route: 040
     Dates: start: 20220314, end: 20220314
  67. FLUOROURACIL [Suspect]
     Active Substance: FLUOROURACIL
     Dosage: 4450 MILLIGRAM, SINGLE DOSE
     Route: 041
     Dates: start: 20220314, end: 20220314
  68. FLUOROURACIL [Suspect]
     Active Substance: FLUOROURACIL
     Dosage: 750 MILLIGRAM, SINGLE DOSE
     Route: 040
     Dates: start: 20220328, end: 20220328
  69. FLUOROURACIL [Suspect]
     Active Substance: FLUOROURACIL
     Dosage: 4450 MILLIGRAM, SINGLE DOSE
     Route: 041
     Dates: start: 20220328, end: 20220328
  70. FLUOROURACIL [Suspect]
     Active Substance: FLUOROURACIL
     Dosage: 750 MILLIGRAM, SINGLE DOSE
     Route: 040
     Dates: start: 20220411, end: 20220411
  71. FLUOROURACIL [Suspect]
     Active Substance: FLUOROURACIL
     Dosage: 4400 MILLIGRAM, SINGLE DOSE
     Route: 041
     Dates: start: 20220411, end: 20220411
  72. FLUOROURACIL [Suspect]
     Active Substance: FLUOROURACIL
     Dosage: 750 MILLIGRAM, SINGLE DOSE
     Route: 040
     Dates: start: 20220425, end: 20220425
  73. FLUOROURACIL [Suspect]
     Active Substance: FLUOROURACIL
     Dosage: 4400 MILLIGRAM, SINGLE DOSE
     Route: 041
     Dates: start: 20220425, end: 20220425
  74. FLUOROURACIL [Suspect]
     Active Substance: FLUOROURACIL
     Dosage: 750 MILLIGRAM, SINGLE DOSE
     Route: 040
     Dates: start: 20220509, end: 20220509
  75. FLUOROURACIL [Suspect]
     Active Substance: FLUOROURACIL
     Dosage: 4400 MILLIGRAM, SINGLE DOSE
     Route: 041
     Dates: start: 20220509, end: 20220509
  76. FLUOROURACIL [Suspect]
     Active Substance: FLUOROURACIL
     Dosage: 750 MILLIGRAM, SINGLE DOSE
     Route: 040
     Dates: start: 20220523, end: 20220523
  77. FLUOROURACIL [Suspect]
     Active Substance: FLUOROURACIL
     Dosage: 4400 MILLIGRAM, SINGLE DOSE
     Route: 041
     Dates: start: 20220523, end: 20220523
  78. FLUOROURACIL [Suspect]
     Active Substance: FLUOROURACIL
     Dosage: 750 MILLIGRAM, SINGLE DOSE
     Route: 040
     Dates: start: 20220608, end: 20220608
  79. FLUOROURACIL [Suspect]
     Active Substance: FLUOROURACIL
     Dosage: 4400 MILLIGRAM, SINGLE DOSE
     Route: 041
     Dates: start: 20220608, end: 20220608
  80. FLUOROURACIL [Suspect]
     Active Substance: FLUOROURACIL
     Dosage: 3550 MILLIGRAM, SINGLE DOSE
     Route: 041
     Dates: start: 20220704, end: 20220704
  81. FLUOROURACIL [Suspect]
     Active Substance: FLUOROURACIL
     Dosage: 3550 MILLIGRAM, SINGLE DOSE
     Route: 041
     Dates: start: 20220719, end: 20220719
  82. FLUOROURACIL [Suspect]
     Active Substance: FLUOROURACIL
     Dosage: 3550 MILLIGRAM, SINGLE DOSE
     Route: 041
     Dates: start: 20220802, end: 20220802
  83. FLUOROURACIL [Suspect]
     Active Substance: FLUOROURACIL
     Dosage: 3550 MILLIGRAM, SINGLE DOSE
     Route: 041
     Dates: start: 20220816, end: 20220816
  84. FLUOROURACIL [Suspect]
     Active Substance: FLUOROURACIL
     Dosage: 3550 MILLIGRAM, SINGLE DOSE
     Route: 041
     Dates: start: 20220906, end: 20220906
  85. FLUOROURACIL [Suspect]
     Active Substance: FLUOROURACIL
     Dosage: 3550 MILLIGRAM, SINGLE DOSE
     Route: 041
     Dates: start: 20220919, end: 20220919
  86. FLUOROURACIL [Suspect]
     Active Substance: FLUOROURACIL
     Dosage: 3550 MILLIGRAM, SINGLE DOSE
     Route: 041
     Dates: start: 20221017, end: 20221017
  87. BEVACIZUMAB [Suspect]
     Active Substance: BEVACIZUMAB
     Indication: Colorectal cancer
     Dosage: 350 MILLIGRAM, SINGLE DOSE
     Route: 041
     Dates: start: 20220214, end: 20220214
  88. BEVACIZUMAB [Suspect]
     Active Substance: BEVACIZUMAB
     Dosage: 350 MILLIGRAM, SINGLE DOSE
     Route: 041
     Dates: start: 20220228, end: 20220228
  89. BEVACIZUMAB [Suspect]
     Active Substance: BEVACIZUMAB
     Dosage: 350 MILLIGRAM, SINGLE DOSE
     Route: 041
     Dates: start: 20220314, end: 20220314
  90. BEVACIZUMAB [Suspect]
     Active Substance: BEVACIZUMAB
     Dosage: 350 MILLIGRAM, SINGLE DOSE
     Route: 041
     Dates: start: 20220328, end: 20220328
  91. BEVACIZUMAB [Suspect]
     Active Substance: BEVACIZUMAB
     Dosage: 350 MILLIGRAM, SINGLE DOSE
     Route: 041
     Dates: start: 20220411, end: 20220411
  92. BEVACIZUMAB [Suspect]
     Active Substance: BEVACIZUMAB
     Dosage: 350 MILLIGRAM, SINGLE DOSE
     Route: 041
     Dates: start: 20220425, end: 20220425
  93. BEVACIZUMAB [Suspect]
     Active Substance: BEVACIZUMAB
     Dosage: 350 MILLIGRAM, SINGLE DOSE
     Route: 041
     Dates: start: 20220509, end: 20220509
  94. BEVACIZUMAB [Suspect]
     Active Substance: BEVACIZUMAB
     Dosage: 350 MILLIGRAM, SINGLE DOSE
     Route: 041
     Dates: start: 20220523, end: 20220523
  95. BEVACIZUMAB [Suspect]
     Active Substance: BEVACIZUMAB
     Dosage: 350 MILLIGRAM, SINGLE DOSE
     Route: 041
     Dates: start: 20220608, end: 20220608
  96. BEVACIZUMAB [Suspect]
     Active Substance: BEVACIZUMAB
     Dosage: 350 MILLIGRAM, SINGLE DOSE
     Route: 041
     Dates: start: 20220704, end: 20220704
  97. BEVACIZUMAB [Suspect]
     Active Substance: BEVACIZUMAB
     Dosage: 350 MILLIGRAM, SINGLE DOSE
     Route: 041
     Dates: start: 20220719, end: 20220719
  98. BEVACIZUMAB [Suspect]
     Active Substance: BEVACIZUMAB
     Dosage: 350 MILLIGRAM, SINGLE DOSE
     Route: 041
     Dates: start: 20220802, end: 20220802
  99. BEVACIZUMAB [Suspect]
     Active Substance: BEVACIZUMAB
     Dosage: 350 MILLIGRAM, SINGLE DOSE
     Route: 065
     Dates: start: 20220816, end: 20220816
  100. BEVACIZUMAB [Suspect]
     Active Substance: BEVACIZUMAB
     Dosage: 350 MILLIGRAM, SINGLE DOSE
     Route: 041
     Dates: start: 20220906, end: 20220906
  101. BEVACIZUMAB [Suspect]
     Active Substance: BEVACIZUMAB
     Dosage: 350 MILLIGRAM, SINGLE DOSE
     Route: 041
     Dates: start: 20220919, end: 20220919
  102. BEVACIZUMAB [Suspect]
     Active Substance: BEVACIZUMAB
     Dosage: 350 MILLIGRAM, SINGLE DOSE
     Route: 065
     Dates: start: 20221003, end: 20221003
  103. BEVACIZUMAB [Suspect]
     Active Substance: BEVACIZUMAB
     Dosage: 350 MILLIGRAM, SINGLE DOSE
     Route: 041
     Dates: start: 20221017, end: 20221017
  104. REGORAFENIB [Suspect]
     Active Substance: REGORAFENIB
     Indication: Colorectal cancer
     Dosage: DRUG NOT ADMINISTERED
     Route: 065
  105. ATENOLOL [Concomitant]
     Active Substance: ATENOLOL
     Indication: Product used for unknown indication
     Dosage: 0.25 MILLIGRAM, ONCE DAILY
     Dates: start: 19990701
  106. TAHOR [Concomitant]
     Active Substance: ATORVASTATIN CALCIUM
     Indication: Product used for unknown indication
     Dosage: 20 MILLIGRAM, ONCE DAILY
     Dates: start: 19990701
  107. KARDEGIC [Concomitant]
     Active Substance: ASPIRIN DL-LYSINE
     Indication: Product used for unknown indication
     Dosage: 160 MILLIGRAM, ONCE DAILY
     Dates: start: 19990701
  108. ESOMEPRAZOLE MAGNESIUM [Concomitant]
     Active Substance: ESOMEPRAZOLE MAGNESIUM
     Indication: Prophylaxis
     Dosage: 40 MILLIGRAM
     Dates: start: 20200701
  109. SKENAN [Concomitant]
     Active Substance: MORPHINE SULFATE
     Indication: Product used for unknown indication
     Dosage: 20 MILLIGRAM
     Dates: start: 20200801
  110. MORPHINE SULFATE [Concomitant]
     Active Substance: MORPHINE SULFATE
     Indication: Product used for unknown indication
     Dosage: UNK
     Dates: start: 20200801
  111. POTASSIUM CHLORIDE [Concomitant]
     Active Substance: POTASSIUM CHLORIDE
     Indication: Prophylaxis
     Dosage: 1 CAPSULE, THREE TIMES DAILY
     Route: 061
     Dates: start: 20211201
  112. XANAX [Concomitant]
     Active Substance: ALPRAZOLAM
     Indication: Prophylaxis
     Dosage: 0.25 MILLIGRAM, ONCE DAILY
     Dates: start: 20220126
  113. ZOPICLONE [Concomitant]
     Active Substance: ZOPICLONE
     Indication: Prophylaxis
     Dosage: 0.5 TABLET, ONCE DAILY
     Dates: start: 20220126

REACTIONS (1)
  - Retinal detachment [Recovered/Resolved]

NARRATIVE: CASE EVENT DATE: 20220909
